FAERS Safety Report 8554482-4 (Version None)
Quarter: 2012Q3

REPORT INFORMATION
  Report Type: 
  Country: None (occurrence: None)
  Receive Date: 20120731
  Receipt Date: 20120716
  Transmission Date: 20120928
  Serious: No
  Sender: FDA-Public Use
  Company Number: US-ASTRAZENECA-2012SE49740

PATIENT
  Sex: Male

DRUGS (2)
  1. SEROQUEL [Suspect]
     Route: 048
     Dates: start: 20110701
  2. SEROQUEL [Suspect]
     Dosage: GENERIC
     Route: 048
     Dates: start: 20120601, end: 20120701

REACTIONS (2)
  - THERAPEUTIC RESPONSE UNEXPECTED [None]
  - INSOMNIA [None]
